FAERS Safety Report 5948031-4 (Version None)
Quarter: 2008Q4

REPORT INFORMATION
  Report Type: 
  Country: None (occurrence: None)
  Receive Date: 20081111
  Receipt Date: 20081028
  Transmission Date: 20090506
  Serious: Yes (Hospitalization)
  Sender: FDA-Public Use
  Company Number: FR-BIOGENIDEC-2008BI026361

PATIENT
  Age: 66 Year
  Sex: Male
  Weight: 76 kg

DRUGS (10)
  1. TYSABRI [Suspect]
     Indication: MULTIPLE SCLEROSIS
     Route: 042
     Dates: start: 20070620
  2. AMLOD [Concomitant]
  3. LIORESAL [Concomitant]
  4. METFORMIN HYDROCHLORIDE [Concomitant]
  5. KARDEGIC [Concomitant]
  6. ZOXAN [Concomitant]
  7. OMEPRAZOLE [Concomitant]
  8. DANTRIUM [Concomitant]
  9. LYRICA [Concomitant]
  10. XALATANE [Concomitant]

REACTIONS (1)
  - PULMONARY EMBOLISM [None]
